FAERS Safety Report 9376397 (Version 1)
Quarter: 2013Q3

REPORT INFORMATION
  Report Type: Spontaneous
  Country: US (occurrence: US)
  Receive Date: 20130701
  Receipt Date: 20130701
  Transmission Date: 20140515
  Serious: No
  Sender: FDA-Public Use
  Company Number: US-JNJFOC-20130609503

PATIENT
  Age: 21 Year
  Sex: Male

DRUGS (4)
  1. INVEGA SUSTENNA [Suspect]
     Indication: PRODUCT USED FOR UNKNOWN INDICATION
     Route: 065
  2. INVEGA SUSTENNA [Suspect]
     Indication: PRODUCT USED FOR UNKNOWN INDICATION
     Route: 065
     Dates: start: 20130516
  3. DEPAKOTE ER [Concomitant]
     Dosage: 2 AT BREAKFAST AND 2 AT LUNCH
     Route: 065
  4. PROZAC [Concomitant]
     Dosage: 2 AT BREAKFAST AND 2 AT LUNCH
     Route: 065

REACTIONS (1)
  - Drug dose omission [Not Recovered/Not Resolved]
